FAERS Safety Report 4870670-2 (Version None)
Quarter: 2006Q1

REPORT INFORMATION
  Report Type: 
  Country: None (occurrence: None)
  Receive Date: 20060103
  Receipt Date: 20051223
  Transmission Date: 20060701
  Serious: Yes (Other)
  Sender: FDA-Public Use
  Company Number: CN-JNJFOC-20051205704

PATIENT
  Age: 51 Year
  Sex: Female

DRUGS (1)
  1. GYNO-DAKTARIN [Suspect]

REACTIONS (2)
  - ROSEOLA [None]
  - SWELLING FACE [None]
